FAERS Safety Report 5099239-4 (Version None)
Quarter: 2006Q3

REPORT INFORMATION
  Report Type: 
  Country: None (occurrence: None)
  Receive Date: 20060731
  Receipt Date: 20050621
  Transmission Date: 20061208
  Serious: Yes (Hospitalization)
  Sender: FDA-Public Use
  Company Number: 215526

PATIENT
  Age: 57 Year

DRUGS (5)
  1. HERCEPTIN [Suspect]
     Indication: BREAST CANCER
     Dosage: SEE IMAGE
     Dates: start: 20050317, end: 20050517
  2. HERCEPTIN [Suspect]
     Indication: BREAST CANCER
     Dosage: SEE IMAGE
     Dates: start: 20050524, end: 20050614
  3. NAVELBINE [Concomitant]
  4. ZOMETA [Concomitant]
  5. GLYBURIDE [Concomitant]

REACTIONS (2)
  - EJECTION FRACTION DECREASED [None]
  - PLEURAL EFFUSION [None]
